FAERS Safety Report 17299914 (Version 1)
Quarter: 2020Q1

REPORT INFORMATION
  Report Type: Spontaneous
  Country: US (occurrence: US)
  Receive Date: 20200122
  Receipt Date: 20200122
  Transmission Date: 20200409
  Serious: No
  Sender: FDA-Public Use
  Company Number: US-ALLERGAN-1933324US

PATIENT
  Age: 50 Year
  Sex: Female

DRUGS (3)
  1. MOTRIN [Concomitant]
     Active Substance: IBUPROFEN
     Indication: BACK PAIN
     Dosage: UNK, PRN
  2. ASPIRIN. [Concomitant]
     Active Substance: ASPIRIN
     Indication: ARRHYTHMIA
     Dosage: 81 MG, QD
     Route: 048
  3. RESTASIS [Suspect]
     Active Substance: CYCLOSPORINE
     Indication: DRY EYE
     Dosage: UNK UNK, TID
     Route: 047
     Dates: start: 2019, end: 2019

REACTIONS (2)
  - Eye irritation [Recovered/Resolved]
  - Product compounding quality issue [Unknown]

NARRATIVE: CASE EVENT DATE: 2019
